FAERS Safety Report 19002203 (Version 2)
Quarter: 2021Q4

REPORT INFORMATION
  Report Type: Spontaneous
  Country: US (occurrence: None)
  Receive Date: 20210312
  Receipt Date: 20211123
  Transmission Date: 20220303
  Serious: Yes (Other)
  Sender: FDA-Public Use
  Company Number: 2021A117280

PATIENT
  Age: 55 Year
  Sex: Female
  Weight: 92.5 kg

DRUGS (30)
  1. NEXIUM [Suspect]
     Active Substance: ESOMEPRAZOLE MAGNESIUM
     Indication: Gastrooesophageal reflux disease
     Route: 048
     Dates: start: 1989
  2. NEXIUM [Suspect]
     Active Substance: ESOMEPRAZOLE MAGNESIUM
     Indication: Gastrooesophageal reflux disease
     Route: 048
     Dates: start: 1989
  3. NEXIUM [Suspect]
     Active Substance: ESOMEPRAZOLE MAGNESIUM
     Indication: Gastrooesophageal reflux disease
     Route: 048
     Dates: start: 2001, end: 2021
  4. NEXIUM [Suspect]
     Active Substance: ESOMEPRAZOLE MAGNESIUM
     Indication: Gastrooesophageal reflux disease
     Route: 048
     Dates: start: 2001, end: 2021
  5. PRILOSEC [Suspect]
     Active Substance: OMEPRAZOLE MAGNESIUM
     Indication: Gastrooesophageal reflux disease
     Route: 048
     Dates: start: 1989, end: 2021
  6. PRILOSEC [Suspect]
     Active Substance: OMEPRAZOLE MAGNESIUM
     Indication: Gastrooesophageal reflux disease
     Route: 048
     Dates: start: 1989, end: 2021
  7. PRILOSEC [Suspect]
     Active Substance: OMEPRAZOLE MAGNESIUM
     Indication: Gastrooesophageal reflux disease
     Dosage: GENERIC
     Route: 065
  8. PRILOSEC [Suspect]
     Active Substance: OMEPRAZOLE MAGNESIUM
     Indication: Gastrooesophageal reflux disease
     Dosage: GENERIC
     Route: 065
  9. PREVACID [Suspect]
     Active Substance: LANSOPRAZOLE
     Indication: Gastrooesophageal reflux disease
     Route: 065
     Dates: start: 2006
  10. PREVACID [Suspect]
     Active Substance: LANSOPRAZOLE
     Indication: Gastrooesophageal reflux disease
     Route: 065
     Dates: start: 2006
  11. SULFAMETHAXAZOLE [Concomitant]
     Indication: Infection
  12. TRIAMTERENE [Concomitant]
     Active Substance: TRIAMTERENE
     Indication: Oedema
  13. SULFAMETHAXAZOLE [Concomitant]
     Indication: Infection
  14. FUROSEMIDE [Concomitant]
     Active Substance: FUROSEMIDE
     Indication: Hypertension
  15. CEFEDROXIL [Concomitant]
     Indication: Infection
  16. AMITRIPTYLINE [Concomitant]
     Active Substance: AMITRIPTYLINE
     Indication: Depression
  17. AZITHROMYCIN [Concomitant]
     Active Substance: AZITHROMYCIN
     Indication: Infection
  18. AMOXICILLIN [Concomitant]
     Active Substance: AMOXICILLIN
     Indication: Infection
  19. CEFPROZIL [Concomitant]
     Active Substance: CEFPROZIL
     Indication: Infection
  20. LEVAQUIN [Concomitant]
     Active Substance: LEVOFLOXACIN
     Indication: Infection
  21. TRAMADOL [Concomitant]
     Active Substance: TRAMADOL
     Indication: Pain
  22. VOLTAREN [Concomitant]
     Active Substance: DICLOFENAC SODIUM
     Indication: Pain
  23. AVELOX [Concomitant]
     Active Substance: MOXIFLOXACIN HYDROCHLORIDE
     Indication: Infection
  24. DOXYCYCLINE [Concomitant]
     Active Substance: DOXYCYCLINE
     Indication: Infection
  25. LISINOPRIL [Concomitant]
     Active Substance: LISINOPRIL
     Indication: Hypertension
  26. LOSARTAN [Concomitant]
     Active Substance: LOSARTAN
     Indication: Hypertension
  27. PRAVASTATIN [Concomitant]
     Active Substance: PRAVASTATIN
     Indication: Hyperlipidaemia
  28. IBUPROFEN [Concomitant]
     Active Substance: IBUPROFEN
     Indication: Pain
  29. GABAPENTIN [Concomitant]
     Active Substance: GABAPENTIN
  30. POTASSIUM [Concomitant]
     Active Substance: POTASSIUM

REACTIONS (2)
  - Chronic kidney disease [Not Recovered/Not Resolved]
  - Gastrooesophageal reflux disease [Not Recovered/Not Resolved]

NARRATIVE: CASE EVENT DATE: 20130101
